FAERS Safety Report 24352575 (Version 1)
Quarter: 2024Q3

REPORT INFORMATION
  Report Type: Spontaneous
  Country: JP (occurrence: JP)
  Receive Date: 20240923
  Receipt Date: 20240923
  Transmission Date: 20241016
  Serious: No
  Sender: ROCHE
  Company Number: JP-CHUGAI-2023023278

PATIENT
  Age: 64 Year
  Sex: Male

DRUGS (4)
  1. HERCEPTIN [Suspect]
     Active Substance: TRASTUZUMAB
     Indication: HER2 positive breast cancer
     Dosage: UNK
     Route: 041
     Dates: start: 20200423, end: 20200522
  2. PERJETA [Suspect]
     Active Substance: PERTUZUMAB
     Indication: HER2 positive breast cancer
     Dosage: 420MG/14ML
     Route: 041
     Dates: start: 20200423, end: 20200522
  3. EPIRUBICIN HYDROCHLORIDE [Suspect]
     Active Substance: EPIRUBICIN HYDROCHLORIDE
     Indication: Product used for unknown indication
     Route: 065
  4. DOCETAXEL [Concomitant]
     Active Substance: DOCETAXEL\DOCETAXEL ANHYDROUS
     Indication: HER2 positive breast cancer
     Dosage: UNK
     Route: 042

REACTIONS (1)
  - Cardiomyopathy [Recovering/Resolving]

NARRATIVE: CASE EVENT DATE: 20200618
